FAERS Safety Report 9613641 (Version 2)
Quarter: 2014Q1

REPORT INFORMATION
  Report Type: Spontaneous
  Country: JP (occurrence: None)
  Receive Date: 20131008
  Receipt Date: 20140205
  Transmission Date: 20141002
  Serious: Yes (Hospitalization, Other)
  Sender: FDA-Public Use
  Company Number: CO-OR-JP-2013-103

PATIENT
  Age: 37 Year
  Sex: Female

DRUGS (3)
  1. PREDNISOLONE [Suspect]
     Indication: NEPHROTIC SYNDROME
  2. PREDNISOLONE [Suspect]
     Indication: NEPHROTIC SYNDROME
  3. METHYLPREDNISOLONE [Suspect]

REACTIONS (6)
  - Condition aggravated [None]
  - Drug ineffective [None]
  - Glomerulonephritis membranous [None]
  - Selective abortion [None]
  - Exposure during pregnancy [None]
  - General physical health deterioration [None]
